FAERS Safety Report 7119888-9 (Version None)
Quarter: 2010Q4

REPORT INFORMATION
  Report Type: 
  Country: None (occurrence: None)
  Receive Date: 20101123
  Receipt Date: 20100929
  Transmission Date: 20110411
  Serious: No
  Sender: FDA-Public Use
  Company Number: US-BRISTOL-MYERS SQUIBB COMPANY-15309818

PATIENT
  Age: 63 Year
  Sex: Female

DRUGS (3)
  1. ONGLYZA [Suspect]
     Dates: start: 20100921, end: 20100901
  2. COUMADIN [Suspect]
  3. BLOOD PRESSURE MEDICATION [Concomitant]

REACTIONS (1)
  - PAIN IN EXTREMITY [None]
